FAERS Safety Report 6170061-0 (Version None)
Quarter: 2009Q2

REPORT INFORMATION
  Report Type: 
  Country: None (occurrence: None)
  Receive Date: 20090428
  Receipt Date: 20090420
  Transmission Date: 20091009
  Serious: Yes (Hospitalization)
  Sender: FDA-Public Use
  Company Number: A0734605A

PATIENT
  Age: 61 Year
  Sex: Female
  Weight: 118.2 kg

DRUGS (15)
  1. AVANDIA [Suspect]
     Dosage: 4MG PER DAY
     Route: 048
     Dates: start: 20040101, end: 20070508
  2. AMARYL [Concomitant]
  3. VYTORIN [Concomitant]
  4. FUROSEMIDE [Concomitant]
  5. NITROGLYCERIN [Concomitant]
  6. TOPROL-XL [Concomitant]
  7. GLUCOPHAGE [Concomitant]
  8. METFORMIN HCL [Concomitant]
  9. SINGULAIR [Concomitant]
  10. LEXAPRO [Concomitant]
  11. PROTONIX [Concomitant]
  12. MULTI-VITAMIN [Concomitant]
  13. BYETTA [Concomitant]
     Dates: start: 20061101
  14. PULMICORT-100 [Concomitant]
  15. XOPENEX [Concomitant]

REACTIONS (5)
  - CARDIAC FAILURE CONGESTIVE [None]
  - HEART INJURY [None]
  - ISCHAEMIC CARDIOMYOPATHY [None]
  - MYOCARDIAL INFARCTION [None]
  - TRANSIENT ISCHAEMIC ATTACK [None]
